FAERS Safety Report 8369089-1 (Version None)
Quarter: 2012Q2

REPORT INFORMATION
  Report Type: 
  Country: None (occurrence: None)
  Receive Date: 20120516
  Receipt Date: 20120516
  Transmission Date: 20120825
  Serious: Yes (Disabling)
  Sender: FDA-Public Use
  Company Number: None

PATIENT
  Age: 43 Year
  Sex: Female
  Weight: 72.5755 kg

DRUGS (2)
  1. LOESTRIN 24 FE [Suspect]
     Indication: MENSTRUAL CYCLE MANAGEMENT
     Dosage: TAKE 1 TABLET DAILY ONCE A DAY PO
     Route: 048
     Dates: start: 20111106, end: 20120425
  2. LOESTRIN 24 FE [Suspect]
     Indication: MENORRHAGIA
     Dosage: TAKE 1 TABLET DAILY ONCE A DAY PO
     Route: 048
     Dates: start: 20111106, end: 20120425

REACTIONS (3)
  - ANDROGENETIC ALOPECIA [None]
  - AMENORRHOEA [None]
  - HORMONE LEVEL ABNORMAL [None]
